FAERS Safety Report 5650391-9 (Version None)
Quarter: 2008Q1

REPORT INFORMATION
  Report Type: 
  Country: None (occurrence: None)
  Receive Date: 20080304
  Receipt Date: 20080304
  Transmission Date: 20080703
  Serious: Yes (Life-Threatening, Hospitalization)
  Sender: FDA-Public Use
  Company Number: None

PATIENT
  Age: 19 Year
  Sex: Female
  Weight: 68.0396 kg

DRUGS (1)
  1. CHANTIX [Suspect]
     Indication: NICOTINE DEPENDENCE
     Dosage: .5 MG 3 DAY THEN .5 MGS 2X DAY FOR 4 DAYS; 1 MG 2X DAILY REST OF 3 WEEKS  PO
     Route: 048
     Dates: start: 20080210, end: 20080220

REACTIONS (4)
  - DEPRESSION [None]
  - EUPHORIC MOOD [None]
  - INJURY [None]
  - SUICIDE ATTEMPT [None]
